FAERS Safety Report 5789122-0 (Version None)
Quarter: 2008Q2

REPORT INFORMATION
  Report Type: 
  Country: None (occurrence: None)
  Receive Date: 20080626
  Receipt Date: 20080618
  Transmission Date: 20081010
  Serious: Yes (Hospitalization)
  Sender: FDA-Public Use
  Company Number: JP-JNJFOC-20080303716

PATIENT
  Sex: Male

DRUGS (17)
  1. ITRIZOLE [Suspect]
     Indication: BRONCHOPULMONARY ASPERGILLOSIS
     Route: 038
  2. AMBISOME [Suspect]
     Indication: BRONCHOPULMONARY ASPERGILLOSIS
     Route: 041
  3. VFEND [Concomitant]
     Indication: BRONCHOPULMONARY ASPERGILLOSIS
     Route: 041
  4. SM [Concomitant]
     Indication: PROPHYLAXIS
     Route: 030
  5. CODEINE SUL TAB [Concomitant]
     Indication: ANTITUSSIVE THERAPY
     Route: 048
  6. MUCODYNE [Concomitant]
     Indication: PROPHYLAXIS
     Route: 048
  7. LANSOPRAZOLE [Concomitant]
     Indication: PROPHYLAXIS AGAINST GASTROINTESTINAL ULCER
     Route: 048
  8. ADONA [Concomitant]
     Indication: HAEMOPTYSIS
     Route: 048
  9. TRANSAMIN [Concomitant]
     Indication: HAEMOPTYSIS
     Route: 048
  10. LOXONIN [Concomitant]
     Indication: PAIN
     Route: 048
  11. ISCOTIN [Concomitant]
     Indication: PROPHYLAXIS
     Route: 048
  12. PYDOXAL [Concomitant]
     Indication: PROPHYLAXIS
     Route: 048
  13. RIFADIN [Concomitant]
     Indication: PROPHYLAXIS
     Route: 048
  14. PYRAMIDE [Concomitant]
     Indication: PROPHYLAXIS
     Route: 048
  15. WASSER V [Concomitant]
     Indication: ANTITUSSIVE THERAPY
     Route: 048
  16. VFEND [Concomitant]
     Route: 048
  17. VFEND [Concomitant]
     Route: 048

REACTIONS (3)
  - HYPOKALAEMIA [None]
  - LIVER DISORDER [None]
  - RHABDOMYOLYSIS [None]
